FAERS Safety Report 14695937 (Version 1)
Quarter: 2018Q1

REPORT INFORMATION
  Report Type: Spontaneous
  Country: CN (occurrence: CN)
  Receive Date: 20180329
  Receipt Date: 20180329
  Transmission Date: 20180509
  Serious: Yes (Hospitalization, Other)
  Sender: FDA-Public Use
  Company Number: CN-GILEAD-2018-0329335

PATIENT
  Age: 63 Year
  Sex: Female

DRUGS (2)
  1. ADEFOVIR DIPIVOXIL. [Suspect]
     Active Substance: ADEFOVIR DIPIVOXIL
     Indication: CHRONIC HEPATITIS B
     Dosage: 10 MG, QD
     Route: 048
  2. LAMIVUDINE. [Suspect]
     Active Substance: LAMIVUDINE
     Indication: CHRONIC HEPATITIS B
     Dosage: 100 MG, QD
     Route: 048

REACTIONS (10)
  - Feeling abnormal [Recovering/Resolving]
  - Fanconi syndrome [Recovering/Resolving]
  - Bone density decreased [Recovering/Resolving]
  - Osteoporosis [Recovering/Resolving]
  - Osteonecrosis [Recovering/Resolving]
  - Femoral neck fracture [Recovering/Resolving]
  - Asthenia [Recovered/Resolved]
  - Arthralgia [Recovering/Resolving]
  - Bone pain [Recovering/Resolving]
  - Drug resistance [Unknown]
